FAERS Safety Report 26073457 (Version 1)
Quarter: 2025Q4

REPORT INFORMATION
  Report Type: Spontaneous
  Country: US (occurrence: US)
  Receive Date: 20251121
  Receipt Date: 20251121
  Transmission Date: 20260118
  Serious: No
  Sender: TORRENT PHARMA INC.
  Company Number: US-TORRENT-00014602

PATIENT
  Sex: Male

DRUGS (1)
  1. VENXXIVA [Suspect]
     Active Substance: TIOPRONIN
     Indication: Cystinuria
     Dosage: 1 TABLET BY MOUTH TWICE DAILY
     Route: 048
     Dates: start: 20251017

REACTIONS (4)
  - Fatigue [Not Recovered/Not Resolved]
  - Oedema peripheral [Recovered/Resolved]
  - Weight increased [Not Recovered/Not Resolved]
  - Abdominal distension [Recovered/Resolved]

NARRATIVE: CASE EVENT DATE: 20251110
